FAERS Safety Report 5267732-7 (Version None)
Quarter: 2007Q1

REPORT INFORMATION
  Report Type: 
  Country: None (occurrence: None)
  Receive Date: 20070316
  Receipt Date: 20070306
  Transmission Date: 20070707
  Serious: Yes (Death, Disabling, Other)
  Sender: FDA-Public Use
  Company Number: PL-PFIZER INC-2007013774

PATIENT
  Sex: Male
  Weight: 90 kg

DRUGS (9)
  1. SU-011,248 [Suspect]
     Indication: RENAL CELL CARCINOMA STAGE UNSPECIFIED
     Route: 048
     Dates: start: 20060131, end: 20060306
  2. METOCLOPRAMIDE [Concomitant]
     Route: 048
     Dates: start: 20060205, end: 20060401
  3. ACLOTIN [Concomitant]
     Route: 048
     Dates: start: 20060205, end: 20060401
  4. FUROSEMIDE [Concomitant]
     Route: 048
     Dates: start: 20060205, end: 20060401
  5. DURAGESIC-100 [Concomitant]
     Route: 062
     Dates: start: 20051101, end: 20060401
  6. LACTULOSE [Concomitant]
     Route: 048
     Dates: start: 20051101, end: 20060401
  7. KETONAL [Concomitant]
     Route: 048
     Dates: start: 20051101, end: 20060401
  8. NAPROXEN [Concomitant]
     Dates: start: 20051101, end: 20060401
  9. PAMIDRONATE DISODIUM [Concomitant]
     Route: 042
     Dates: start: 20050301, end: 20060401

REACTIONS (1)
  - DEATH [None]
